FAERS Safety Report 9530219 (Version 1)
Quarter: 2013Q3

REPORT INFORMATION
  Report Type: Spontaneous
  Country: US (occurrence: US)
  Receive Date: 20130917
  Receipt Date: 20130917
  Transmission Date: 20140515
  Serious: Yes (Other)
  Sender: FDA-Public Use
  Company Number: US-ABBVIE-13P-163-1148049-00

PATIENT
  Age: 59 Year
  Sex: Female
  Weight: 52.21 kg

DRUGS (4)
  1. SYNTHROID [Suspect]
     Indication: HYPOTHYROIDISM
     Route: 048
     Dates: start: 20130904
  2. SYNTHROID [Suspect]
     Route: 048
     Dates: start: 2011, end: 20130903
  3. SYNTHROID [Suspect]
     Dates: end: 2011
  4. ESTRADIOL [Concomitant]
     Indication: HORMONE REPLACEMENT THERAPY

REACTIONS (4)
  - Chest pain [Recovered/Resolved]
  - Face oedema [Recovered/Resolved]
  - Blood thyroid stimulating hormone increased [Unknown]
  - Urticaria [Not Recovered/Not Resolved]
